FAERS Safety Report 5016025-1 (Version None)
Quarter: 2006Q2

REPORT INFORMATION
  Report Type: 
  Country: None (occurrence: None)
  Receive Date: 20060531
  Receipt Date: 20060531
  Transmission Date: 20061013
  Serious: Yes (Hospitalization)
  Sender: FDA-Public Use
  Company Number: None

PATIENT
  Sex: Female
  Weight: 61.6 kg

DRUGS (14)
  1. VENOFER [Suspect]
     Indication: ANAEMIA
     Dosage: 500 MG WEEKLY IV BOLUS
     Route: 040
     Dates: start: 20051013, end: 20051013
  2. SINGULAIR [Concomitant]
  3. ALLEGRA [Concomitant]
  4. CELEBREX [Concomitant]
  5. PREVACID [Concomitant]
  6. VITAMIN B-12 [Concomitant]
  7. DEPAKOTE [Concomitant]
  8. NEURONTIN [Concomitant]
  9. URSODIOL [Concomitant]
  10. CALCITRIOL [Concomitant]
  11. SODIUM BICARBONATE [Concomitant]
  12. ARANESP [Concomitant]
  13. TYLENOL (CAPLET) [Concomitant]
  14. LOSARTAN POTASSIUM [Concomitant]

REACTIONS (5)
  - DISTURBANCE IN ATTENTION [None]
  - DIZZINESS [None]
  - HEADACHE [None]
  - PAIN [None]
  - SPEECH DISORDER [None]
